FAERS Safety Report 9514905 (Version 4)
Quarter: 2013Q4

REPORT INFORMATION
  Report Type: Spontaneous
  Country: US (occurrence: None)
  Receive Date: 20130909
  Receipt Date: 20131023
  Transmission Date: 20140711
  Serious: Yes (Life-Threatening, Hospitalization)
  Sender: FDA-Public Use
  Company Number: VAL_02715_2013

PATIENT
  Age: 56 Year
  Sex: Male

DRUGS (9)
  1. METOPROLOL [Suspect]
     Indication: CARDIOMYOPATHY
     Dosage: (UP TO 500 MG)
     Route: 048
  2. LISINOPRIL [Suspect]
     Indication: HYPERTENSION
     Dosage: 5 TABLETS [REGIMEN #1] ORAL
     Route: 048
  3. FUROSEMIDE [Suspect]
     Indication: PRODUCT USED FOR UNKNOWN INDICATION
     Dosage: 5  TABLETS  [REGIMEN#1] ORAL
     Route: 048
  4. FUROSEMIDE [Suspect]
     Indication: CARDIOMYOPATHY
     Dosage: 5  TABLETS  [REGIMEN#1] ORAL
     Route: 048
  5. ISOSORBIDE DINITRATE [Suspect]
     Indication: PRODUCT USED FOR UNKNOWN INDICATION
     Dosage: 5 TABLETS [REGIMEN #1] ORAL
     Route: 048
  6. ISOSORBIDE DINITRATE [Suspect]
     Indication: CARDIOMYOPATHY
     Dosage: 5 TABLETS [REGIMEN #1] ORAL
     Route: 048
  7. INSULIN GLARGINE [Suspect]
     Indication: PRODUCT USED FOR UNKNOWN INDICATION
     Dosage: 100 UNITS INSULIN GLARGINE (ELEVEN 100 UNITS/ML 3 ML PENS) [REGIMEN #1] SUBCUTANEOUS
     Route: 058
  8. DIPHENHYDRAMINE [Suspect]
     Indication: PRODUCT USED FOR UNKNOWN INDICATION
     Dosage: (MIGHT HAVE TAKEN UP TO 1.2 G)
     Route: 048
  9. ATROPINE (UNKNOWN) [Concomitant]

REACTIONS (8)
  - Hypoglycaemia [None]
  - Overdose [None]
  - Suicide attempt [None]
  - Somnolence [None]
  - Hypotension [None]
  - Heart rate decreased [None]
  - Diet refusal [None]
  - Intentional overdose [None]
